FAERS Safety Report 8995969 (Version 2)
Quarter: 2013Q1

REPORT INFORMATION
  Report Type: Spontaneous
  Country: FR (occurrence: FR)
  Receive Date: 20130103
  Receipt Date: 20130124
  Transmission Date: 20140127
  Serious: Yes (Other)
  Sender: FDA-Public Use
  Company Number: FR-B.I. PHARMACEUTICALS,INC./RIDGEFIELD-2012-FF-02082FF

PATIENT
  Age: 80 Year
  Sex: Female

DRUGS (7)
  1. PRADAXA [Suspect]
     Indication: THROMBOSIS PROPHYLAXIS
     Dosage: 75 MG
     Route: 048
     Dates: start: 20121008, end: 20121009
  2. BUPIVACAINE [Suspect]
     Indication: ANAESTHESIA
     Dosage: 5 MG/ML
     Route: 037
     Dates: start: 20121008, end: 20121008
  3. CEFUROXIME [Suspect]
     Indication: ANTIBIOTIC PROPHYLAXIS
     Route: 042
     Dates: start: 20121008, end: 20121008
  4. PARACETAMOL [Suspect]
     Indication: PAIN
     Route: 042
     Dates: start: 20121008, end: 20121009
  5. DYNASTAT [Suspect]
     Indication: PAIN
     Dosage: 40 MG
     Route: 042
     Dates: start: 20121008, end: 20121008
  6. MORPHINE [Suspect]
     Indication: PAIN
     Route: 042
     Dates: start: 20121008, end: 20121008
  7. NEFOPAM [Suspect]
     Indication: PAIN
     Dosage: 20 MG
     Route: 042
     Dates: start: 20121008, end: 20121008

REACTIONS (3)
  - Transaminases increased [Recovered/Resolved]
  - Bilirubin conjugated abnormal [Unknown]
  - Blood bilirubin unconjugated increased [Unknown]
